FAERS Safety Report 9683423 (Version 3)
Quarter: 2014Q1

REPORT INFORMATION
  Report Type: Spontaneous
  Country: JP (occurrence: JP)
  Receive Date: 20131112
  Receipt Date: 20140129
  Transmission Date: 20141002
  Serious: Yes (Death, Life-Threatening, Other)
  Sender: FDA-Public Use
  Company Number: JP-NOVOPROD-392085

PATIENT
  Age: 89 Year
  Sex: Male

DRUGS (17)
  1. SUREPOST [Suspect]
     Indication: TYPE 2 DIABETES MELLITUS
     Dosage: 0.5 MG, QD
     Route: 048
     Dates: start: 20131025, end: 20131030
  2. TRAZENTA [Suspect]
     Indication: TYPE 2 DIABETES MELLITUS
     Dosage: 5 MG
     Route: 048
     Dates: start: 20131021, end: 20131030
  3. MEROPEN                            /01250501/ [Concomitant]
     Indication: SEPSIS
     Dosage: 3 G, QD
     Dates: start: 20131030, end: 20131105
  4. GRAN [Concomitant]
     Indication: PRODUCT USED FOR UNKNOWN INDICATION
     Dosage: 150 ?G, QD
     Dates: start: 20131102, end: 20131106
  5. GRAN [Concomitant]
     Dosage: 75 ?G, QD
     Dates: start: 20131030, end: 20131101
  6. HOKUNALIN                          /00654901/ [Concomitant]
     Indication: ASTHMA
     Dosage: 2 MG, QD
  7. FRANDOL S [Concomitant]
     Indication: MYOCARDIAL ISCHAEMIA
     Dosage: 40 MG, QD
  8. RINDERON                           /00008501/ [Concomitant]
     Indication: RHEUMATOID ARTHRITIS
     Dosage: 2 MG, QD
     Dates: start: 20131010, end: 20131022
  9. RINDERON                           /00008501/ [Concomitant]
     Dosage: UNK
     Dates: start: 20131023, end: 20131030
  10. VEEN D [Concomitant]
     Indication: FLUID REPLACEMENT
     Dosage: 500 ML, QD
     Dates: start: 20131010, end: 20131021
  11. BFLUID [Concomitant]
     Indication: FLUID REPLACEMENT
     Dosage: 500 ML, QD
     Dates: start: 20131010, end: 20131021
  12. BFLUID [Concomitant]
     Dosage: 1000 ML, QD
     Dates: start: 20131022
  13. TRIFLUID                           /01777401/ [Concomitant]
     Indication: PRODUCT USED FOR UNKNOWN INDICATION
     Dosage: 500 ML, QD
     Dates: start: 20131010, end: 20131020
  14. VITAMIN C                          /00008001/ [Concomitant]
     Indication: HYPOPHAGIA
     Dosage: 500 MG, QD
     Dates: start: 20131022
  15. VITAMEDIN                          /00176001/ [Concomitant]
     Indication: HYPOPHAGIA
     Dosage: 1 DORSAGE FORM/DAY
     Dates: start: 20131022
  16. ALFAROL [Concomitant]
     Indication: OSTEOPOROSIS
     Dosage: 0.5 ?G, QD
     Dates: start: 20131023, end: 20131030
  17. TAKEPRON [Concomitant]
     Indication: PRODUCT USED FOR UNKNOWN INDICATION
     Dosage: 30 MG, QD
     Dates: start: 20131023, end: 20131030

REACTIONS (4)
  - Pneumonia aspiration [Fatal]
  - Neutropenia [Recovered/Resolved]
  - Sepsis [Unknown]
  - Hypoglycaemia [Unknown]
